FAERS Safety Report 7310788-8 (Version None)
Quarter: 2011Q1

REPORT INFORMATION
  Report Type: 
  Country: None (occurrence: None)
  Receive Date: 20110224
  Receipt Date: 20110215
  Transmission Date: 20110831
  Serious: Yes (Other)
  Sender: FDA-Public Use
  Company Number: US-B.I. PHARMACEUTICALS,INC./RIDGEFIELD-2011-BP-00940PF

PATIENT
  Sex: Female

DRUGS (13)
  1. CISPLATIN/ETOPUSIDE [Concomitant]
     Dates: start: 20100601, end: 20100801
  2. SPIRIVA [Suspect]
     Indication: SMALL CELL LUNG CANCER STAGE UNSPECIFIED
     Dosage: 18 MCG
     Route: 055
  3. STEROIDS [Concomitant]
     Indication: SWELLING FACE
  4. CHEMO [Concomitant]
     Indication: SUPERIOR VENA CAVA SYNDROME
  5. DEXAMETHASONE [Concomitant]
     Indication: SUPERIOR VENA CAVA SYNDROME
  6. SPIRIVA [Suspect]
     Indication: DYSPNOEA
  7. TYLENOL [Concomitant]
     Indication: MUSCLE SPASMS
  8. VALIUM [Concomitant]
     Indication: MUSCLE SPASMS
  9. SPIRIVA [Suspect]
     Indication: RESPIRATORY DISORDER
  10. CARAFATE [Concomitant]
     Indication: RADIATION SKIN INJURY
  11. STEROIDS [Concomitant]
     Indication: LOCAL SWELLING
  12. SWISH AND SWALLOW [Concomitant]
     Indication: RADIATION SKIN INJURY
  13. CARBOPLAVEN/ETUPISIDE [Concomitant]
     Dates: start: 20100901, end: 20100901

REACTIONS (1)
  - SMALL CELL LUNG CANCER RECURRENT [None]
